FAERS Safety Report 7060099-3 (Version None)
Quarter: 2010Q4

REPORT INFORMATION
  Report Type: 
  Country: None (occurrence: None)
  Receive Date: 20101025
  Receipt Date: 20101018
  Transmission Date: 20110411
  Serious: Yes (Death)
  Sender: FDA-Public Use
  Company Number: US-JNJFOC-20100105565

PATIENT
  Age: 44 Year
  Sex: Female

DRUGS (9)
  1. TRAMADOL [Suspect]
     Indication: SUICIDE ATTEMPT
     Route: 051
  2. ACETAMINOPHEN [Suspect]
     Route: 051
  3. ACETAMINOPHEN [Suspect]
     Indication: SUICIDE ATTEMPT
     Route: 051
  4. HYDROCODONE BITARTRATE AND ACETAMINOPHEN [Suspect]
     Indication: SUICIDE ATTEMPT
     Route: 051
  5. PROMETHAZINE [Suspect]
     Indication: SUICIDE ATTEMPT
     Route: 051
  6. PAROXETINE HCL [Concomitant]
  7. SALMETEROL [Concomitant]
  8. ALBUTEROL [Concomitant]
  9. EFAVIRENZ, EMTRICITABINE, AND TENOFOVIR DISOPROXIL [Concomitant]

REACTIONS (2)
  - COMPLETED SUICIDE [None]
  - DRUG TOXICITY [None]
